FAERS Safety Report 6805655-X (Version None)
Quarter: 2010Q2

REPORT INFORMATION
  Report Type: 
  Country: None (occurrence: None)
  Receive Date: 20100628
  Receipt Date: 20080125
  Transmission Date: 20101027
  Serious: No
  Sender: FDA-Public Use
  Company Number: US-PFIZER INC-2007100861

PATIENT
  Sex: Female
  Weight: 38.636 kg

DRUGS (2)
  1. SYNAREL [Suspect]
     Indication: PRECOCIOUS PUBERTY
     Dosage: 2 PUFFS EACH NOSTRIL
     Route: 045
     Dates: start: 20071116
  2. TYLENOL [Concomitant]

REACTIONS (2)
  - DRUG DOSE OMISSION [None]
  - HEADACHE [None]
